FAERS Safety Report 7012769-0 (Version None)
Quarter: 2010Q3

REPORT INFORMATION
  Report Type: 
  Country: None (occurrence: None)
  Receive Date: 20100924
  Receipt Date: 20100921
  Transmission Date: 20110219
  Serious: Yes (Hospitalization)
  Sender: FDA-Public Use
  Company Number: A0882362A

PATIENT
  Age: 76 Year
  Sex: Female

DRUGS (6)
  1. ADVAIR DISKUS 100/50 [Suspect]
     Indication: CHRONIC OBSTRUCTIVE PULMONARY DISEASE
     Dosage: 1PUFF TWICE PER DAY
     Route: 055
     Dates: start: 20060101
  2. SPIRIVA [Concomitant]
  3. LISINOPRIL [Concomitant]
  4. ALENDRONATE SODIUM [Concomitant]
  5. PRAMIPEXOLE [Concomitant]
  6. PROBIOTICS [Concomitant]

REACTIONS (7)
  - COLITIS [None]
  - GASTRIC HAEMORRHAGE [None]
  - HAEMORRHAGIC ANAEMIA [None]
  - SALIVARY GLAND DISORDER [None]
  - SIALOADENITIS [None]
  - TOOTH ABSCESS [None]
  - TOOTH DISORDER [None]
